FAERS Safety Report 13674884 (Version 2)
Quarter: 2017Q3

REPORT INFORMATION
  Report Type: Spontaneous
  Country: US (occurrence: US)
  Receive Date: 20170621
  Receipt Date: 20170810
  Transmission Date: 20171127
  Serious: No
  Sender: FDA-Public Use
  Company Number: US-LEO PHARMA-303400

PATIENT
  Age: 52 Year
  Sex: Female

DRUGS (1)
  1. PICATO [Suspect]
     Active Substance: INGENOL MEBUTATE
     Indication: ACTINIC KERATOSIS
     Route: 061
     Dates: start: 20170618

REACTIONS (5)
  - Application site erythema [Recovering/Resolving]
  - Application site scab [Recovered/Resolved]
  - Application site inflammation [Recovered/Resolved]
  - Erythema [Recovering/Resolving]
  - Application site swelling [Recovered/Resolved]

NARRATIVE: CASE EVENT DATE: 20170619
